FAERS Safety Report 14347937 (Version 1)
Quarter: 2018Q1

REPORT INFORMATION
  Report Type: Report from Study
  Country: CL (occurrence: CL)
  Receive Date: 20180103
  Receipt Date: 20180103
  Transmission Date: 20180509
  Serious: Yes (Other)
  Sender: FDA-Public Use
  Company Number: PHHY2017CL196312

PATIENT
  Age: 10 Year
  Sex: Female
  Weight: 42 kg

DRUGS (1)
  1. OMNITROPE [Suspect]
     Active Substance: SOMATROPIN
     Indication: PRECOCIOUS PUBERTY
     Dosage: 3.9 U (10 MG), QD
     Route: 058
     Dates: start: 20170815, end: 20171222

REACTIONS (3)
  - Blood glucose abnormal [Unknown]
  - Blood insulin abnormal [Unknown]
  - Glycosylated haemoglobin increased [Unknown]

NARRATIVE: CASE EVENT DATE: 20171222
